FAERS Safety Report 5946944-0 (Version None)
Quarter: 2008Q4

REPORT INFORMATION
  Report Type: 
  Country: None (occurrence: None)
  Receive Date: 20081107
  Receipt Date: 20081107
  Transmission Date: 20090506
  Serious: No
  Sender: FDA-Public Use
  Company Number: None

PATIENT
  Age: 69 Year
  Sex: Male

DRUGS (1)
  1. LENALIDOMIDE [Suspect]
     Dosage: 15 MG EVERY DAY PO
     Route: 048
     Dates: start: 20071030, end: 20071203

REACTIONS (3)
  - PRURITUS [None]
  - RASH [None]
  - URTICARIA [None]
